FAERS Safety Report 16995399 (Version 1)
Quarter: 2019Q4

REPORT INFORMATION
  Report Type: Spontaneous
  Country: US (occurrence: US)
  Receive Date: 20191105
  Receipt Date: 20191105
  Transmission Date: 20200122
  Serious: Yes (Other)
  Sender: FDA-Public Use
  Company Number: US-SHIRE-US201936912

PATIENT
  Age: 14 Year
  Sex: Male
  Weight: 54.88 kg

DRUGS (1)
  1. VYVANSE [Suspect]
     Active Substance: LISDEXAMFETAMINE DIMESYLATE
     Indication: ATTENTION DEFICIT/HYPERACTIVITY DISORDER
     Dosage: 30 MILLIGRAM, 1X/DAY:QD
     Route: 048
     Dates: start: 20190603, end: 201910

REACTIONS (2)
  - Syncope [Unknown]
  - Weight decreased [Unknown]

NARRATIVE: CASE EVENT DATE: 201910
